FAERS Safety Report 16004383 (Version 1)
Quarter: 2019Q1

REPORT INFORMATION
  Report Type: Spontaneous
  Country: US (occurrence: US)
  Receive Date: 20190225
  Receipt Date: 20190225
  Transmission Date: 20190418
  Serious: No
  Sender: FDA-Public Use
  Company Number: None

PATIENT
  Age: 38 Year
  Sex: Female
  Weight: 48.6 kg

DRUGS (9)
  1. ALINIA [Suspect]
     Active Substance: NITAZOXANIDE
     Indication: INFECTION PARASITIC
     Dosage: ?          QUANTITY:1 CAPSULE(S);?
     Route: 048
  2. VITAMIN C [Concomitant]
     Active Substance: ASCORBIC ACID
  3. OPTIFERIN-C [Concomitant]
  4. PCO-PX [Concomitant]
  5. RNA DETOX SPRAYS [Concomitant]
  6. VITAMIN D [Concomitant]
     Active Substance: CHOLECALCIFEROL
  7. IMMUNOKINOKO [Concomitant]
  8. PROBIOTICS [Concomitant]
     Active Substance: PROBIOTICS NOS
  9. FIBERPLEX [Concomitant]

REACTIONS (3)
  - Thirst [None]
  - Chromaturia [None]
  - Abdominal pain upper [None]

NARRATIVE: CASE EVENT DATE: 20190221
